FAERS Safety Report 8195408-5 (Version None)
Quarter: 2012Q1

REPORT INFORMATION
  Report Type: 
  Country: None (occurrence: None)
  Receive Date: 20120308
  Receipt Date: 20120302
  Transmission Date: 20120608
  Serious: Yes (Other)
  Sender: FDA-Public Use
  Company Number: PHHY2012CA018184

PATIENT
  Sex: Female
  Weight: 61 kg

DRUGS (10)
  1. FOSAMAX [Concomitant]
     Dosage: 70 MG, UNK
     Dates: start: 20061107, end: 20081111
  2. EVISTA [Concomitant]
     Dosage: 670 MG, UNK
  3. MIACALCIN [Concomitant]
     Dosage: 200 IU, UNK
     Dates: start: 20080806, end: 20090629
  4. FORTEO [Concomitant]
     Dosage: 20 MG, UNK
  5. VITAMIN D [Concomitant]
     Dosage: 500 UKN, BID
     Dates: start: 20060802
  6. HORMONES NOS [Concomitant]
  7. ZOLEDRONOC ACID [Suspect]
     Indication: OSTEOPOROSIS
     Dosage: 5 MG/100 ML
     Route: 042
     Dates: start: 20091118
  8. ACTONEL [Concomitant]
  9. CALCIUM [Concomitant]
     Dosage: 400 UKN, BID
     Dates: start: 20060802
  10. DIDROCAL [Concomitant]
     Dosage: 400 MG, UNK

REACTIONS (1)
  - NEPHROPATHY TOXIC [None]
